FAERS Safety Report 7896519-1 (Version None)
Quarter: 2011Q4

REPORT INFORMATION
  Report Type: 
  Country: None (occurrence: None)
  Receive Date: 20111106
  Receipt Date: 20110909
  Transmission Date: 20120403
  Serious: No
  Sender: FDA-Public Use
  Company Number: US-AMGEN-USASP2011043173

PATIENT
  Age: 50 Year
  Sex: Female
  Weight: 81.633 kg

DRUGS (1)
  1. ENBREL [Suspect]
     Indication: PSORIASIS
     Dosage: 25 MG, 2 TIMES/WK
     Dates: start: 20070101, end: 20100901

REACTIONS (2)
  - DRUG INEFFECTIVE [None]
  - PSORIASIS [None]
